FAERS Safety Report 8043699 (Version 3)
Quarter: 2013Q2

REPORT INFORMATION
  Report Type: Spontaneous
  Country: US (occurrence: US)
  Receive Date: 20110719
  Receipt Date: 20130625
  Transmission Date: 20140414
  Serious: Yes (Death, Hospitalization)
  Sender: FDA-Public Use
  Company Number: US-GLAXOSMITHKLINE-A0869289A

PATIENT
  Age: 72 Year
  Sex: Female

DRUGS (10)
  1. AVANDIA [Suspect]
     Indication: DIABETES MELLITUS
     Dosage: 8MG PER DAY
     Route: 048
     Dates: start: 20040101, end: 20070601
  2. METFORMIN [Concomitant]
  3. GLYBURIDE [Concomitant]
  4. LOZOL [Concomitant]
  5. LEXAPRO [Concomitant]
  6. ZOCOR [Concomitant]
  7. ATENOLOL [Concomitant]
  8. LEVAQUIN [Concomitant]
  9. IRON SULFATE [Concomitant]
  10. COLACE [Concomitant]

REACTIONS (2)
  - Cardiac failure congestive [Fatal]
  - Cardio-respiratory arrest [Fatal]
